FAERS Safety Report 15378491 (Version 1)
Quarter: 2018Q3

REPORT INFORMATION
  Report Type: Spontaneous
  Country: US (occurrence: US)
  Receive Date: 20180913
  Receipt Date: 20180913
  Transmission Date: 20181010
  Serious: No
  Sender: FDA-Public Use
  Company Number: US-OMEROS CORPORATION-2017OME00010

PATIENT
  Age: 66 Year
  Sex: Female
  Weight: 136.05 kg

DRUGS (16)
  1. LIDOCAINE WITH EPI [Concomitant]
  2. CALCIPOTRIENE. [Concomitant]
     Active Substance: CALCIPOTRIENE
  3. HYDROXYZINE HYDROCHLORIDE. [Concomitant]
     Active Substance: HYDROXYZINE HYDROCHLORIDE
  4. LISINOPRIL. [Concomitant]
     Active Substance: LISINOPRIL
  5. OMIDRIA [Suspect]
     Active Substance: KETOROLAC\PHENYLEPHRINE
     Indication: INTRAOCULAR LENS IMPLANT
  6. MELOXICAM. [Concomitant]
     Active Substance: MELOXICAM
  7. DESOXIMETASONE. [Concomitant]
     Active Substance: DESOXIMETASONE
  8. DULOXETINE. [Concomitant]
     Active Substance: DULOXETINE
  9. LEVOTHYROXINE. [Concomitant]
     Active Substance: LEVOTHYROXINE
  10. TROPICAMIDE. [Concomitant]
     Active Substance: TROPICAMIDE
  11. HYLENEX RECOMBINANT [Concomitant]
     Active Substance: HYALURONIDASE (HUMAN RECOMBINANT)
     Dosage: 150 U, UNK
  12. OMIDRIA [Suspect]
     Active Substance: KETOROLAC\PHENYLEPHRINE
     Indication: CATARACT OPERATION
     Dosage: 4 MLS IN 500 MLS BSS PLUS; 350?400 MLS USED, ONCE
     Dates: start: 20170810, end: 20170810
  13. NEOSYNEPHRINE [Concomitant]
     Active Substance: PHENYLEPHRINE HYDROCHLORIDE
  14. BALANCED SALT SOLUTION PLUS [Concomitant]
  15. ROSUVASTATIN. [Concomitant]
     Active Substance: ROSUVASTATIN
  16. CILOXAN [Concomitant]
     Active Substance: CIPROFLOXACIN HYDROCHLORIDE

REACTIONS (1)
  - Iritis [Recovered/Resolved]

NARRATIVE: CASE EVENT DATE: 20170811
